FAERS Safety Report 15060955 (Version 1)
Quarter: 2018Q2

REPORT INFORMATION
  Report Type: Spontaneous
  Country: US (occurrence: US)
  Receive Date: 20180625
  Receipt Date: 20180625
  Transmission Date: 20180711
  Serious: No
  Sender: FDA-Public Use
  Company Number: US-ROCHE-2111725

PATIENT
  Age: 70 Year
  Sex: Female
  Weight: 59.02 kg

DRUGS (18)
  1. CLONAZEPAM. [Suspect]
     Active Substance: CLONAZEPAM
     Indication: INSOMNIA
  2. NABUMETONE. [Concomitant]
     Active Substance: NABUMETONE
  3. PRAVASTATIN. [Concomitant]
     Active Substance: PRAVASTATIN
  4. METHOTREXATE. [Concomitant]
     Active Substance: METHOTREXATE
     Indication: RHEUMATOID ARTHRITIS
     Dosage: 2.5MG TABLET, TAKES 8 TABLETS BY MOUTH ONCE A WEEK
     Route: 048
  5. FOLIC ACID. [Concomitant]
     Active Substance: FOLIC ACID
     Dosage: 1MG, 1 TABLET BY MOUTH TWICE A DAY
     Route: 048
  6. ROPINIROLE. [Concomitant]
     Active Substance: ROPINIROLE
  7. SINGULAIR [Concomitant]
     Active Substance: MONTELUKAST SODIUM
  8. LEVOTHYROXINE. [Concomitant]
     Active Substance: LEVOTHYROXINE
  9. RESTASIS [Concomitant]
     Active Substance: CYCLOSPORINE
  10. ALLERGY SHOT [Concomitant]
     Active Substance: UNSPECIFIED INGREDIENT
  11. GABAPENTIN. [Concomitant]
     Active Substance: GABAPENTIN
  12. XELJANZ XR [Concomitant]
     Active Substance: TOFACITINIB CITRATE
     Indication: RHEUMATOID ARTHRITIS
     Route: 048
     Dates: start: 2017
  13. LIOTHYRONINE [Concomitant]
     Active Substance: LIOTHYRONINE
  14. AMITRIPTYLINE [Concomitant]
     Active Substance: AMITRIPTYLINE
  15. LINZESS [Concomitant]
     Active Substance: LINACLOTIDE
  16. MOVANTIK [Concomitant]
     Active Substance: NALOXEGOL OXALATE
  17. CLONAZEPAM. [Suspect]
     Active Substance: CLONAZEPAM
     Indication: PAIN
     Dosage: HALF OF A TABLET BY MOUTH AT BEDTIME?STARTED 10 YEARS AGO.
     Route: 048
  18. OMEPRAZOLE. [Concomitant]
     Active Substance: OMEPRAZOLE

REACTIONS (1)
  - Back injury [Not Recovered/Not Resolved]

NARRATIVE: CASE EVENT DATE: 201803
